FAERS Safety Report 7687466-9 (Version None)
Quarter: 2011Q3

REPORT INFORMATION
  Report Type: 
  Country: None (occurrence: None)
  Receive Date: 20110816
  Receipt Date: 20110329
  Transmission Date: 20111222
  Serious: Yes (Other)
  Sender: FDA-Public Use
  Company Number: ZA-BRISTOL-MYERS SQUIBB COMPANY-14024269

PATIENT
  Age: 45 Year
  Sex: Male

DRUGS (5)
  1. WARFARIN SODIUM [Concomitant]
     Dates: start: 20071130
  2. IPILIMUMAB [Suspect]
     Indication: MALIGNANT MELANOMA
     Dosage: NO OF COURSES:3
     Route: 042
     Dates: start: 20070816, end: 20070927
  3. DACARBAZINE [Suspect]
     Indication: MALIGNANT MELANOMA
     Dosage: NO OF COURSES:3
     Route: 042
     Dates: start: 20070816, end: 20070927
  4. THALIDOMIDE [Concomitant]
     Dates: start: 20071130
  5. TENOXIL [Concomitant]
     Dates: start: 20071130

REACTIONS (1)
  - AUTOIMMUNE DISORDER [None]
